FAERS Safety Report 4606848-2 (Version None)
Quarter: 2005Q1

REPORT INFORMATION
  Report Type: 
  Country: None (occurrence: None)
  Receive Date: 20050314
  Receipt Date: 20040901
  Transmission Date: 20050727
  Serious: Yes (Other)
  Sender: FDA-Public Use
  Company Number: 200418922GDDC

PATIENT
  Age: 31 Year
  Sex: Female

DRUGS (2)
  1. CLOMID [Suspect]
     Indication: OVULATION INDUCTION
     Route: 048
     Dates: start: 20040902, end: 20040906
  2. FOLIC ACID [Concomitant]
     Route: 048

REACTIONS (2)
  - BREAST TENDERNESS [None]
  - GALACTORRHOEA [None]
